FAERS Safety Report 6530740-X (Version None)
Quarter: 2010Q1

REPORT INFORMATION
  Report Type: 
  Country: None (occurrence: None)
  Receive Date: 20100108
  Receipt Date: 20090106
  Transmission Date: 20100710
  Serious: No
  Sender: FDA-Public Use
  Company Number: A0762532A

PATIENT
  Age: 64 Year
  Sex: Female

DRUGS (9)
  1. LOVAZA [Suspect]
     Indication: BLOOD CHOLESTEROL INCREASED
     Dosage: 2CAP TWICE PER DAY
     Route: 048
     Dates: start: 20070101, end: 20081205
  2. SYNTHROID [Concomitant]
  3. NEXIUM [Concomitant]
  4. LOTREL [Concomitant]
  5. PAXIL [Concomitant]
  6. WELLBUTRIN [Concomitant]
  7. CLONAZEPAM [Concomitant]
  8. CLARINEX [Concomitant]
  9. ZYRTEC [Concomitant]

REACTIONS (1)
  - URTICARIA [None]
